FAERS Safety Report 17499574 (Version 1)
Quarter: 2020Q1

REPORT INFORMATION
  Report Type: Spontaneous
  Country: US (occurrence: US)
  Receive Date: 20200304
  Receipt Date: 20200304
  Transmission Date: 20200409
  Serious: Yes (Hospitalization)
  Sender: FDA-Public Use
  Company Number: US-PTC THERAPEUTICS, INC.-US-2019PTC001520

PATIENT
  Age: 14 Year
  Sex: Male

DRUGS (1)
  1. EMFLAZA [Suspect]
     Active Substance: DEFLAZACORT
     Indication: MUSCULAR DYSTROPHY
     Dosage: 18 MG, QD
     Route: 048

REACTIONS (3)
  - Femur fracture [Unknown]
  - Fibula fracture [Unknown]
  - Tibia fracture [Unknown]

NARRATIVE: CASE EVENT DATE: 20191117
